FAERS Safety Report 5388516-5 (Version None)
Quarter: 2007Q3

REPORT INFORMATION
  Report Type: 
  Country: None (occurrence: None)
  Receive Date: 20070716
  Receipt Date: 20061114
  Transmission Date: 20080115
  Serious: No
  Sender: FDA-Public Use
  Company Number: US-BRISTOL-MYERS SQUIBB COMPANY-13580253

PATIENT
  Age: 60 Year
  Sex: Male

DRUGS (1)
  1. SINEMET CR [Suspect]
     Indication: PARKINSON'S DISEASE

REACTIONS (3)
  - AGGRESSION [None]
  - CONFUSIONAL STATE [None]
  - MEDICATION ERROR [None]
